FAERS Safety Report 8824916 (Version 3)
Quarter: 2015Q1

REPORT INFORMATION
  Report Type: Report from Study
  Country: US (occurrence: US)
  Receive Date: 20121004
  Receipt Date: 20150129
  Transmission Date: 20150721
  Serious: Yes (Death, Other)
  Sender: FDA-Public Use
  Company Number: US-ROCHE-1122918

PATIENT
  Age: 73 Year
  Sex: Male
  Weight: 75.36 kg

DRUGS (18)
  1. FOLIC ACID. [Concomitant]
     Active Substance: FOLIC ACID
  2. PEPTO-BISMOL [Concomitant]
     Active Substance: BISMUTH SUBSALICYLATE\CALCIUM CARBONATE
  3. PENTOSTATIN. [Concomitant]
     Active Substance: PENTOSTATIN
  4. FOLIC ACID. [Concomitant]
     Active Substance: FOLIC ACID
  5. DARVOCET [Concomitant]
     Active Substance: ACETAMINOPHEN\PROPOXYPHENE HYDROCHLORIDE
  6. ALLOPURINOL. [Concomitant]
     Active Substance: ALLOPURINOL
     Route: 065
  7. FLUDARABINE [Concomitant]
     Active Substance: FLUDARABINE PHOSPHATE
     Route: 042
  8. TYLENOL [Concomitant]
     Active Substance: ACETAMINOPHEN
     Route: 048
  9. BENADRYL [Concomitant]
     Active Substance: DIPHENHYDRAMINE HYDROCHLORIDE
     Route: 065
  10. DECADRON [Concomitant]
     Active Substance: DEXAMETHASONE
     Route: 042
  11. SOLU-MEDROL [Concomitant]
     Active Substance: METHYLPREDNISOLONE SODIUM SUCCINATE
  12. CEFTRIAXONE. [Concomitant]
     Active Substance: CEFTRIAXONE
     Route: 065
  13. RITUXAN [Suspect]
     Active Substance: RITUXIMAB
     Indication: PROLYMPHOCYTIC LEUKAEMIA
     Route: 042
     Dates: start: 20001220
  14. RITUXAN [Suspect]
     Active Substance: RITUXIMAB
     Indication: LYMPHOCYTIC LYMPHOMA
  15. ANZEMET [Concomitant]
     Active Substance: DOLASETRON MESYLATE
  16. VITAMIN E [Concomitant]
     Active Substance: .ALPHA.-TOCOPHEROL
  17. METHOTREXATE [Concomitant]
     Active Substance: METHOTREXATE
  18. CIPROFLOXACIN. [Suspect]
     Active Substance: CIPROFLOXACIN
     Indication: URINARY TRACT INFECTION
     Route: 065

REACTIONS (31)
  - Cough [Unknown]
  - Dizziness [Unknown]
  - Blood lactate dehydrogenase increased [Unknown]
  - Arthralgia [Unknown]
  - Pain [Unknown]
  - Gait disturbance [Unknown]
  - Somnolence [Unknown]
  - Urinary tract infection [Unknown]
  - Blood alkaline phosphatase increased [Unknown]
  - Death [Fatal]
  - Thrombocytopenia [Unknown]
  - Chills [Recovered/Resolved]
  - Alopecia [Unknown]
  - Pain in extremity [Unknown]
  - Dyspnoea [Unknown]
  - Disease progression [Unknown]
  - Weight increased [Unknown]
  - Pyrexia [Unknown]
  - Erythema [Unknown]
  - Rash vesicular [Unknown]
  - Gastrointestinal haemorrhage [Unknown]
  - Rash erythematous [Unknown]
  - Tremor [Recovered/Resolved]
  - Fatigue [Unknown]
  - Heart rate increased [Unknown]
  - Hypersensitivity [Unknown]
  - Asthenia [Unknown]
  - Spinal column stenosis [Unknown]
  - Retroperitoneal lymphadenopathy [Unknown]
  - Haematochezia [Recovering/Resolving]
  - Prolymphocytic leukaemia [Unknown]

NARRATIVE: CASE EVENT DATE: 20010116
